FAERS Safety Report 10506322 (Version 3)
Quarter: 2014Q4

REPORT INFORMATION
  Report Type: Spontaneous
  Country: HU (occurrence: HU)
  Receive Date: 20141009
  Receipt Date: 20141117
  Transmission Date: 20150528
  Serious: Yes (Other)
  Sender: FDA-Public Use
  Company Number: HU-PFIZER INC-2014260453

PATIENT
  Age: 45 Year
  Sex: Female

DRUGS (3)
  1. WARFARIN [Suspect]
     Active Substance: WARFARIN
     Dosage: UNK
     Route: 048
     Dates: start: 201408, end: 201408
  2. SUTENT [Suspect]
     Active Substance: SUNITINIB MALATE
     Indication: METASTATIC RENAL CELL CARCINOMA
     Dosage: 37.5 MG CYCLIC
     Route: 048
     Dates: start: 20140804, end: 20140918
  3. SUTENT [Suspect]
     Active Substance: SUNITINIB MALATE
     Dosage: 37.5 MG CYCLIC, 12.5 MG DURING MENSES
     Route: 048
     Dates: end: 20141110

REACTIONS (3)
  - Polymenorrhoea [Unknown]
  - Menorrhagia [Not Recovered/Not Resolved]
  - Menorrhagia [Unknown]

NARRATIVE: CASE EVENT DATE: 201409
